FAERS Safety Report 10830463 (Version 2)
Quarter: 2015Q4

REPORT INFORMATION
  Report Type: Spontaneous
  Country: US (occurrence: US)
  Receive Date: 20150219
  Receipt Date: 20151210
  Transmission Date: 20160304
  Serious: No
  Sender: FDA-Public Use
  Company Number: US-JNJFOC-20150201355

PATIENT
  Sex: Male

DRUGS (1)
  1. RISPERDAL [Suspect]
     Active Substance: RISPERIDONE
     Indication: ATTENTION DEFICIT/HYPERACTIVITY DISORDER
     Route: 048
     Dates: start: 2007, end: 2011

REACTIONS (5)
  - Product use issue [Unknown]
  - Gynaecomastia [Unknown]
  - Off label use [Unknown]
  - Abnormal weight gain [Unknown]
  - Galactorrhoea [Unknown]

NARRATIVE: CASE EVENT DATE: 2007
